FAERS Safety Report 4648694-X (Version None)
Quarter: 2005Q2

REPORT INFORMATION
  Report Type: 
  Country: None (occurrence: None)
  Receive Date: 20050427
  Receipt Date: 20050420
  Transmission Date: 20051028
  Serious: Yes (Life-Threatening)
  Sender: FDA-Public Use
  Company Number: NARC20050001

PATIENT
  Age: 16 Year
  Sex: Male

DRUGS (2)
  1. NARCAN [Suspect]
     Indication: REVERSAL OF OPIATE ACTIVITY
     Dates: start: 20050401, end: 20050401
  2. FENTANYL [Concomitant]

REACTIONS (2)
  - APNOEA [None]
  - PULMONARY OEDEMA [None]
